FAERS Safety Report 10185792 (Version 3)
Quarter: 2014Q2

REPORT INFORMATION
  Report Type: Spontaneous
  Country: US (occurrence: US)
  Receive Date: 20140521
  Receipt Date: 20140619
  Transmission Date: 20141212
  Serious: Yes (Disabling, Other)
  Sender: FDA-Public Use
  Company Number: US-JNJFOC-20131112050

PATIENT
  Age: 64 Year
  Sex: Female
  Weight: 75.75 kg

DRUGS (22)
  1. RISPERDAL CONSTA [Suspect]
     Indication: PSYCHOTIC DISORDER
     Dosage: GLUTEAL REGION
     Route: 030
     Dates: start: 20100824
  2. DITROPAN-XL [Concomitant]
     Route: 048
     Dates: start: 20131025
  3. NAPROSYN [Concomitant]
     Route: 048
  4. VALERIAN ROOT [Concomitant]
     Route: 048
  5. DITROPAN [Concomitant]
     Indication: URINARY INCONTINENCE
     Route: 048
  6. SYNTHROID [Concomitant]
     Route: 065
     Dates: start: 20131116
  7. DITROPAN-XL [Concomitant]
     Route: 048
     Dates: start: 20131025
  8. CELEXA [Concomitant]
     Route: 048
     Dates: start: 20130925
  9. ZYPREXA [Concomitant]
     Route: 048
  10. PRILOSEC [Concomitant]
     Route: 048
     Dates: start: 20140408
  11. FOSAMAX [Concomitant]
     Route: 048
     Dates: start: 20140303
  12. REGLAN [Concomitant]
     Route: 048
  13. ROBAXIN [Concomitant]
     Route: 048
     Dates: start: 20140208
  14. SYNTHROID [Concomitant]
     Route: 048
     Dates: start: 20131116
  15. MAPAP [Concomitant]
     Route: 048
     Dates: start: 20131116
  16. VICODIN [Concomitant]
     Dosage: 5/500 MG
     Route: 048
     Dates: start: 20130925
  17. CELEXA [Concomitant]
     Route: 048
     Dates: start: 20130925
  18. BENTYL [Concomitant]
     Route: 048
     Dates: start: 20130925
  19. OCEAN [Concomitant]
     Dosage: 1 SPRAY AS REQUIRED
     Route: 045
  20. EXCEDRIN (ACETAMINOPHEN/ASPIRIN/CAFFEINE) [Concomitant]
     Dosage: AS REQUIRED
     Route: 048
  21. PREPARATION H RECTAL [Concomitant]
     Dosage: AS REQUIRED, 0.25-3-85.5 %
     Route: 054
  22. ZYPREXA [Concomitant]
     Route: 048

REACTIONS (11)
  - Fibromyalgia [Not Recovered/Not Resolved]
  - Mesenteric panniculitis [Not Recovered/Not Resolved]
  - Lymphoma [Not Recovered/Not Resolved]
  - Gastrooesophageal reflux disease [Not Recovered/Not Resolved]
  - Osteoporosis [Not Recovered/Not Resolved]
  - Neck pain [Not Recovered/Not Resolved]
  - Paranoia [Not Recovered/Not Resolved]
  - Tachycardia [Not Recovered/Not Resolved]
  - Weight decreased [Not Recovered/Not Resolved]
  - Pain [Not Recovered/Not Resolved]
  - Anxiety [Not Recovered/Not Resolved]
